FAERS Safety Report 11417092 (Version 1)
Quarter: 2015Q3

REPORT INFORMATION
  Report Type: Spontaneous
  Country: DK (occurrence: DK)
  Receive Date: 20150825
  Receipt Date: 20150825
  Transmission Date: 20151125
  Serious: Yes (Other)
  Sender: FDA-Public Use
  Company Number: DK-TEVA-588322ISR

PATIENT
  Age: 82 Year
  Sex: Female

DRUGS (2)
  1. ENALAPRIL TEVA 20 MG [Suspect]
     Active Substance: ENALAPRIL MALEATE
     Indication: TYPE 2 DIABETES MELLITUS
  2. ATORVASTATIN TEVA 20 MG [Suspect]
     Active Substance: ATORVASTATIN
     Indication: TYPE 2 DIABETES MELLITUS

REACTIONS (4)
  - Thrombosis [Unknown]
  - Enuresis [Recovered/Resolved]
  - Amnesia [Not Recovered/Not Resolved]
  - Hypoacusis [Not Recovered/Not Resolved]

NARRATIVE: CASE EVENT DATE: 201508
